FAERS Safety Report 12197408 (Version 1)
Quarter: 2016Q1

REPORT INFORMATION
  Report Type: Report from Study
  Country: IT (occurrence: IT)
  Receive Date: 20160322
  Receipt Date: 20160322
  Transmission Date: 20160526
  Serious: Yes (Death, Hospitalization, Other)
  Sender: FDA-Public Use
  Company Number: PHHY2016IT011944

PATIENT
  Age: 28 Year
  Sex: Female
  Weight: 50 kg

DRUGS (2)
  1. TRAMETINIB [Suspect]
     Active Substance: TRAMETINIB
     Indication: METASTATIC MALIGNANT MELANOMA
     Dosage: UNK
     Route: 048
     Dates: start: 20151210, end: 20160125
  2. DABRAFENIB [Suspect]
     Active Substance: DABRAFENIB
     Indication: METASTATIC MALIGNANT MELANOMA
     Dosage: UNK
     Route: 048
     Dates: start: 20151022, end: 20160125

REACTIONS (5)
  - Vomiting [Not Recovered/Not Resolved]
  - Malignant neoplasm progression [Unknown]
  - Death [Fatal]
  - Metastases to central nervous system [Unknown]
  - Nodule [Unknown]

NARRATIVE: CASE EVENT DATE: 20160115
